FAERS Safety Report 8179031-4 (Version None)
Quarter: 2012Q1

REPORT INFORMATION
  Report Type: 
  Country: None (occurrence: None)
  Receive Date: 20120302
  Receipt Date: 20120223
  Transmission Date: 20120608
  Serious: Yes (Death)
  Sender: FDA-Public Use
  Company Number: IN-ROCHE-1044105

PATIENT
  Age: 60 Year
  Sex: Male

DRUGS (6)
  1. METALYSE [Suspect]
     Indication: ACUTE MYOCARDIAL INFARCTION
     Route: 042
     Dates: start: 20120223, end: 20120223
  2. ATROPINE [Concomitant]
  3. ECOSPRIN [Concomitant]
  4. PANTOCID [Concomitant]
  5. HEPARIN [Concomitant]
  6. CLOPILET [Concomitant]

REACTIONS (1)
  - THROMBOLYSIS [None]
